FAERS Safety Report 7407677-7 (Version None)
Quarter: 2011Q2

REPORT INFORMATION
  Report Type: 
  Country: None (occurrence: None)
  Receive Date: 20110412
  Receipt Date: 20101203
  Transmission Date: 20111010
  Serious: Yes (Hospitalization)
  Sender: FDA-Public Use
  Company Number: FR-BAYER-2010-002042

PATIENT
  Age: 79 Year
  Sex: Male
  Weight: 89 kg

DRUGS (13)
  1. CORDARONE [Concomitant]
     Dosage: UNK
     Dates: end: 20100901
  2. KARDEGIC [Concomitant]
  3. CIFLOX [Suspect]
     Dosage: 400 MG, BID
     Route: 042
     Dates: start: 20100915
  4. CIFLOX [Suspect]
     Dosage: 400 MG, TID
     Route: 042
     Dates: start: 20100101, end: 20100101
  5. MIANSERIN [Suspect]
     Dosage: 30 MG, QD
     Route: 048
     Dates: start: 20101101, end: 20101102
  6. LASIX [Concomitant]
  7. NEURONTIN [Suspect]
     Indication: NEURALGIA
     Dosage: 300 MG, TID
     Route: 048
     Dates: start: 20101003, end: 20101102
  8. CARDENSIEL [Concomitant]
  9. CIFLOX [Suspect]
     Dosage: 750 MG, BID
     Route: 048
     Dates: start: 20101005, end: 20101102
  10. CIFLOX [Suspect]
     Dosage: 500 MG, BID
     Route: 048
     Dates: start: 20101101, end: 20101102
  11. TAZOCILLINE [Suspect]
     Dosage: 4 G, TID
     Route: 042
     Dates: start: 20100831, end: 20101102
  12. LOVENOX [Concomitant]
  13. TAHOR [Concomitant]
     Dosage: 10 MG/D

REACTIONS (9)
  - AGITATION [None]
  - PURPURA [None]
  - NAUSEA [None]
  - VOMITING [None]
  - ANXIETY [None]
  - LIVER DISORDER [None]
  - HALLUCINATION [None]
  - CONFUSIONAL STATE [None]
  - HEPATIC FAILURE [None]
